FAERS Safety Report 7287942-7 (Version None)
Quarter: 2011Q1

REPORT INFORMATION
  Report Type: 
  Country: None (occurrence: None)
  Receive Date: 20110211
  Receipt Date: 20110207
  Transmission Date: 20110831
  Serious: Yes (Hospitalization)
  Sender: FDA-Public Use
  Company Number: SE-AMGEN-US319348

PATIENT
  Age: 78 Year
  Sex: Male

DRUGS (6)
  1. E-VIMIN [Concomitant]
     Dosage: UNK
  2. CALCICHEW [Concomitant]
     Dosage: UNK
  3. ETANERCEPT [Suspect]
     Indication: RHEUMATOID ARTHRITIS
     Dosage: 50 MG, QWK
     Dates: start: 20070815, end: 20080601
  4. WARAN [Concomitant]
     Dosage: UNK
  5. ZOLPIDEM TARTRATE [Concomitant]
     Dosage: UNK
  6. TAVEGYL                            /00137201/ [Concomitant]
     Dosage: UNK

REACTIONS (1)
  - GENITAL NEOPLASM MALIGNANT MALE [None]
